FAERS Safety Report 17670340 (Version 2)
Quarter: 2020Q3

REPORT INFORMATION
  Report Type: Spontaneous
  Country: US (occurrence: US)
  Receive Date: 20200415
  Receipt Date: 20200727
  Transmission Date: 20201102
  Serious: Yes (Other)
  Sender: FDA-Public Use
  Company Number: US-AMNEAL PHARMACEUTICALS-2020-AMRX-00968

PATIENT
  Age: 15 Year
  Sex: Female
  Weight: 58.5 kg

DRUGS (14)
  1. ALLEGRA ALLERGY [Concomitant]
     Active Substance: FEXOFENADINE HYDROCHLORIDE
     Indication: ACNE
     Dosage: 180 MILLIGRAM
     Route: 048
  2. TRETINOIN. [Concomitant]
     Active Substance: TRETINOIN
     Indication: ACNE
     Dosage: UNK
     Route: 061
     Dates: start: 2019
  3. DESONIDE. [Concomitant]
     Active Substance: DESONIDE
     Indication: ACNE
     Dosage: UNK
     Route: 061
  4. PLEXION [EPERISONE HYDROCHLORIDE] [Concomitant]
     Indication: ACNE
     Dosage: 9.8?4.8 PERCENT
     Route: 061
  5. VITAMIN D [COLECALCIFEROL] [Concomitant]
     Active Substance: CHOLECALCIFEROL
     Indication: PRODUCT USED FOR UNKNOWN INDICATION
     Dosage: UNK
     Route: 065
  6. LEXAPRO [Concomitant]
     Active Substance: ESCITALOPRAM OXALATE
     Indication: PRODUCT USED FOR UNKNOWN INDICATION
     Dosage: 5 MILLIGRAM, DAILY
     Route: 065
  7. LEXAPRO [Concomitant]
     Active Substance: ESCITALOPRAM OXALATE
     Dosage: 10 MILLIGRAM, INCREASED DOSE
     Route: 065
  8. ISOTRETINOIN. [Suspect]
     Active Substance: ISOTRETINOIN
     Indication: ACNE
     Dosage: 30 MILLIGRAM, DAILY
     Route: 048
     Dates: start: 201912
  9. ISOTRETINOIN. [Suspect]
     Active Substance: ISOTRETINOIN
     Dosage: 30 MILLIGRAM, BID
     Route: 048
     Dates: start: 20200129
  10. CEPHALEXIN [CEFALEXIN] [Concomitant]
     Active Substance: CEPHALEXIN
     Indication: ACNE
     Dosage: 500 MILLIGRAM, 2 /DAY FOR ONE MONTH
     Route: 048
     Dates: start: 2019
  11. CEPHALEXIN [CEFALEXIN] [Concomitant]
     Active Substance: CEPHALEXIN
     Dosage: UNK
     Route: 061
  12. AVEENO CLEAR COMPLEXION DAILY CLEANSING [Concomitant]
     Active Substance: SALICYLIC ACID
     Indication: ACNE
     Dosage: UNK, DAILY
     Route: 065
     Dates: start: 2019
  13. BENZOYL PEROXIDE. [Concomitant]
     Active Substance: BENZOYL PEROXIDE
     Indication: ACNE
     Dosage: UNK, AT NIGHT
     Route: 065
     Dates: start: 2019
  14. VITAMINS NOS [Concomitant]
     Active Substance: VITAMINS
     Indication: PRODUCT USED FOR UNKNOWN INDICATION
     Dosage: UNK
     Route: 065

REACTIONS (3)
  - Intentional self-injury [Unknown]
  - Xerosis [Unknown]
  - Cheilitis [Unknown]

NARRATIVE: CASE EVENT DATE: 202002
